FAERS Safety Report 21300838 (Version 1)
Quarter: 2022Q3

REPORT INFORMATION
  Report Type: Spontaneous
  Country: ES (occurrence: ES)
  Receive Date: 20220907
  Receipt Date: 20220907
  Transmission Date: 20221026
  Serious: Yes (Hospitalization)
  Sender: FDA-Public Use
  Company Number: None

PATIENT
  Age: 76 Year
  Sex: Male

DRUGS (2)
  1. CLOPIDOGREL [Interacting]
     Active Substance: CLOPIDOGREL BISULFATE
     Indication: Cerebrovascular accident
     Dosage: CLOPIDOGREL (7300A)
     Dates: start: 20091111, end: 20220723
  2. ENOXAPARIN [Interacting]
     Active Substance: ENOXAPARIN
     Indication: Prophylaxis
     Dosage: 2,000 IU (20 MG)/0.2 ML, 10 PRE-FILLED SYRINGES OF 0.2 ML, UNIT DOSE: 20 MG, FREQUENCY TIME-1 DAY, D
     Dates: start: 20220721, end: 20220723

REACTIONS (2)
  - Rectal haemorrhage [Recovered/Resolved]
  - Drug interaction [Unknown]

NARRATIVE: CASE EVENT DATE: 20220723
